FAERS Safety Report 4475090-0 (Version None)
Quarter: 2004Q4

REPORT INFORMATION
  Report Type: 
  Country: None (occurrence: None)
  Receive Date: 20041015
  Receipt Date: 20040922
  Transmission Date: 20050328
  Serious: Yes (Hospitalization)
  Sender: FDA-Public Use
  Company Number: NSADSS2002028209

PATIENT
  Sex: Male

DRUGS (14)
  1. REMICADE [Suspect]
     Route: 041
     Dates: start: 20010821
  2. REMICADE [Suspect]
     Route: 041
     Dates: start: 20010821
  3. REMICADE [Suspect]
     Route: 041
     Dates: start: 20010821
  4. REMICADE [Suspect]
     Route: 041
     Dates: start: 20010821
  5. REMICADE [Suspect]
     Route: 041
     Dates: start: 20010821
  6. REMICADE [Suspect]
     Indication: PSORIATIC ARTHROPATHY
     Route: 041
     Dates: start: 20010821
  7. METOPROLOL [Concomitant]
     Route: 049
     Dates: start: 20020829
  8. METHOTREXATE [Concomitant]
     Route: 049
     Dates: start: 20020812
  9. METHOTREXATE [Concomitant]
     Route: 030
     Dates: start: 20010913
  10. SALSALATE [Concomitant]
     Route: 049
     Dates: start: 20020718
  11. FOLIC ACID [Concomitant]
     Route: 049
     Dates: start: 19960506
  12. CLOBETASOL [Concomitant]
     Route: 003
     Dates: start: 20000101
  13. COUMADIN [Concomitant]
     Route: 049
     Dates: start: 20020718
  14. COUMADIN [Concomitant]
     Route: 049
     Dates: start: 20020718

REACTIONS (4)
  - ATRIAL FIBRILLATION [None]
  - ATRIAL FLUTTER [None]
  - DIARRHOEA [None]
  - JOINT SWELLING [None]
